FAERS Safety Report 5803268-X (Version None)
Quarter: 2008Q3

REPORT INFORMATION
  Report Type: 
  Country: None (occurrence: None)
  Receive Date: 20080708
  Receipt Date: 20080701
  Transmission Date: 20090109
  Serious: Yes (Congenital Anomaly)
  Sender: FDA-Public Use
  Company Number: A0687289A

PATIENT
  Sex: Male

DRUGS (4)
  1. PAXIL CR [Suspect]
     Indication: DEPRESSION
     Dosage: 50MG PER DAY
     Dates: start: 20040101, end: 20050401
  2. AMOXICILLIN [Concomitant]
     Dates: start: 20051001
  3. TRAZODONE HCL [Concomitant]
     Dates: start: 20050301
  4. ZOLOFT [Concomitant]
     Dates: start: 20051201

REACTIONS (2)
  - DRUG EXPOSURE DURING PREGNANCY [None]
  - VENTRICULAR SEPTAL DEFECT [None]
